FAERS Safety Report 24974306 (Version 4)
Quarter: 2025Q3

REPORT INFORMATION
  Report Type: Spontaneous
  Country: JP (occurrence: JP)
  Receive Date: 20250217
  Receipt Date: 20250718
  Transmission Date: 20251021
  Serious: Yes (Hospitalization)
  Sender: BOEHRINGER INGELHEIM
  Company Number: JP-NBI-2025-BI-008252

PATIENT
  Age: 75 Year
  Sex: Male
  Weight: 56.20 kg

DRUGS (14)
  1. OFEV [Suspect]
     Active Substance: NINTEDANIB
     Indication: Interstitial lung disease
     Dates: start: 20240612, end: 20240716
  2. OFEV [Suspect]
     Active Substance: NINTEDANIB
     Dates: start: 20240717, end: 20240726
  3. OFEV [Suspect]
     Active Substance: NINTEDANIB
     Dates: start: 20240729, end: 20241029
  4. ASTOMIN [Concomitant]
     Indication: Interstitial lung disease
     Dates: start: 20240117
  5. LINAGLIPTIN [Concomitant]
     Active Substance: LINAGLIPTIN
     Indication: Type 2 diabetes mellitus
  6. DAPAGLIFLOZIN [Concomitant]
     Active Substance: DAPAGLIFLOZIN
     Indication: Type 2 diabetes mellitus
  7. SPHERICAL CARBON ADSORBENT [Concomitant]
     Indication: Chronic kidney disease
     Dates: start: 20241008
  8. AMLODIPINE [Concomitant]
     Active Substance: AMLODIPINE BESYLATE
     Indication: Hypertension
  9. ENTRESTO [Concomitant]
     Active Substance: SACUBITRIL\VALSARTAN
     Indication: Aortic valve stenosis
     Dates: start: 20231026
  10. CLOPIDOGREL [Concomitant]
     Active Substance: CLOPIDOGREL BISULFATE
     Indication: Angina pectoris
     Dates: end: 20241108
  11. ASPIRIN [Concomitant]
     Active Substance: ASPIRIN
     Indication: Angina pectoris
     Dates: end: 20241108
  12. FEBUXOSTAT [Concomitant]
     Active Substance: FEBUXOSTAT
     Indication: Hyperuricaemia
  13. PITAVASTATIN CALCIUM [Concomitant]
     Active Substance: PITAVASTATIN CALCIUM
     Indication: Hyperlipidaemia
  14. SILODOSIN [Concomitant]
     Active Substance: SILODOSIN
     Indication: Dysuria

REACTIONS (4)
  - Focal segmental glomerulosclerosis [Not Recovered/Not Resolved]
  - Renal tubular injury [Not Recovered/Not Resolved]
  - Diarrhoea [Recovering/Resolving]
  - Nausea [Recovering/Resolving]

NARRATIVE: CASE EVENT DATE: 20240612
